FAERS Safety Report 4860628-1 (Version None)
Quarter: 2005Q4

REPORT INFORMATION
  Report Type: 
  Country: None (occurrence: None)
  Receive Date: 20051216
  Receipt Date: 20051121
  Transmission Date: 20060501
  Serious: Yes (Other)
  Sender: FDA-Public Use
  Company Number: 200512691BWH

PATIENT
  Sex: Male

DRUGS (1)
  1. CIPRO XR [Suspect]
     Dosage: TRANSMAMMARY
     Route: 063

REACTIONS (3)
  - DIARRHOEA HAEMORRHAGIC [None]
  - DRUG EXPOSURE VIA BREAST MILK [None]
  - FLATULENCE [None]
